FAERS Safety Report 24395668 (Version 1)
Quarter: 2024Q4

REPORT INFORMATION
  Report Type: Spontaneous
  Country: CN (occurrence: CN)
  Receive Date: 20241004
  Receipt Date: 20241004
  Transmission Date: 20250115
  Serious: Yes (Other)
  Sender: AMGEN
  Company Number: CN-AMGEN-CHNSP2024193945

PATIENT
  Age: 61 Year
  Sex: Male

DRUGS (4)
  1. CARFILZOMIB [Suspect]
     Active Substance: CARFILZOMIB
     Indication: Chemotherapy
     Dosage: 36 MILLIGRAM, D1-2
     Route: 042
     Dates: start: 20240912
  2. CARFILZOMIB [Suspect]
     Active Substance: CARFILZOMIB
     Dosage: 49 MILLIGRAM, D8-9, 15-16
     Route: 042
     Dates: start: 20240919, end: 20240920
  3. CYCLOPHOSPHAMIDE [Suspect]
     Active Substance: CYCLOPHOSPHAMIDE
     Indication: Chemotherapy
     Dosage: 0.55 GRAM, D1, D8, D15, D22
     Route: 042
     Dates: start: 20240912
  4. DEXAMETHASONE SODIUM PHOSPHATE [Concomitant]
     Active Substance: DEXAMETHASONE SODIUM PHOSPHATE
     Indication: Diuretic therapy
     Dosage: 40 MILLIGRAM, 20MG D1-2, 40MG D8-9, D15-16, D22-23
     Route: 042
     Dates: start: 20240912

REACTIONS (1)
  - Simple partial seizures [Recovering/Resolving]

NARRATIVE: CASE EVENT DATE: 20240921
